FAERS Safety Report 6129689-6 (Version None)
Quarter: 2009Q1

REPORT INFORMATION
  Report Type: 
  Country: None (occurrence: None)
  Receive Date: 20090323
  Receipt Date: 20090323
  Transmission Date: 20090719
  Serious: No
  Sender: FDA-Public Use
  Company Number: None

PATIENT
  Age: 69 Year

DRUGS (1)
  1. METOPROLOL TARTRATE [Suspect]
     Indication: NASAL CONGESTION
     Dates: start: 19920101, end: 20070101

REACTIONS (5)
  - DYSPNOEA [None]
  - MOUTH BREATHING [None]
  - NASAL CONGESTION [None]
  - PRODUCT QUALITY ISSUE [None]
  - REACTION TO DRUG EXCIPIENTS [None]
